FAERS Safety Report 20033047 (Version 1)
Quarter: 2021Q4

REPORT INFORMATION
  Report Type: Report from Study
  Country: JP (occurrence: JP)
  Receive Date: 20211104
  Receipt Date: 20211104
  Transmission Date: 20220303
  Serious: Yes (Hospitalization, Other)
  Sender: FDA-Public Use
  Company Number: JP-TEVA-2020-JP-1238169

PATIENT
  Age: 60 Year
  Sex: Female
  Weight: 39.4 kg

DRUGS (8)
  1. RASAGILINE MESYLATE [Suspect]
     Active Substance: RASAGILINE MESYLATE
     Indication: Parkinson^s disease
     Dosage: 1 MILLIGRAM DAILY;
     Route: 065
     Dates: start: 20191002
  2. LEVODOPA [Concomitant]
     Active Substance: LEVODOPA
  3. ISTRADEFYLLINE [Concomitant]
     Active Substance: ISTRADEFYLLINE
  4. PRAMIPEXOLE DIHYDROCHLORIDE [Concomitant]
     Active Substance: PRAMIPEXOLE DIHYDROCHLORIDE
  5. RIVOTRIL [Concomitant]
     Active Substance: CLONAZEPAM
     Dates: start: 20200714, end: 20200819
  6. REBAMIPIDE [Concomitant]
     Active Substance: REBAMIPIDE
  7. ALFACALCIDOL [Concomitant]
     Active Substance: ALFACALCIDOL
  8. ELDECALCITOL [Concomitant]
     Active Substance: ELDECALCITOL

REACTIONS (4)
  - Pelvic fracture [Recovering/Resolving]
  - Pelvic fracture [Recovering/Resolving]
  - Myalgia [Recovered/Resolved]
  - Nasopharyngitis [Recovered/Resolved]

NARRATIVE: CASE EVENT DATE: 20191002
